FAERS Safety Report 7128242-5 (Version None)
Quarter: 2010Q4

REPORT INFORMATION
  Report Type: 
  Country: None (occurrence: None)
  Receive Date: 20101130
  Receipt Date: 20101119
  Transmission Date: 20110411
  Serious: Yes (Hospitalization)
  Sender: FDA-Public Use
  Company Number: JP-NOVOPROD-318304

PATIENT
  Age: 75 Year
  Sex: Female
  Weight: 54 kg

DRUGS (4)
  1. NOVORAPID CHU PENFILL [Suspect]
     Indication: TYPE 2 DIABETES MELLITUS
     Dosage: 9 U QDL
     Route: 058
     Dates: start: 20081031, end: 20081106
  2. NOVOLIN R [Suspect]
     Indication: TYPE 2 DIABETES MELLITUS
     Dosage: 19 U, QD
     Route: 058
     Dates: start: 20081107
  3. HUMALOG [Concomitant]
     Dosage: 29 U, QD
     Route: 058
     Dates: start: 20081020, end: 20081030
  4. BASEN [Concomitant]
     Route: 048

REACTIONS (3)
  - ANTI-INSULIN ANTIBODY INCREASED [None]
  - HYPERGLYCAEMIA [None]
  - HYPOGLYCAEMIA [None]
